FAERS Safety Report 10515309 (Version 1)
Quarter: 2014Q4

REPORT INFORMATION
  Report Type: Spontaneous
  Country: IT (occurrence: IT)
  Receive Date: 20141014
  Receipt Date: 20141014
  Transmission Date: 20150528
  Serious: Yes (Hospitalization)
  Sender: FDA-Public Use
  Company Number: IT-BRISTOL-MYERS SQUIBB COMPANY-21483052

PATIENT
  Age: 72 Year
  Sex: Male

DRUGS (11)
  1. COUMADIN [Suspect]
     Active Substance: WARFARIN SODIUM
     Indication: ATRIAL FIBRILLATION
     Route: 048
     Dates: start: 20110316, end: 20141009
  2. RAMIPRIL. [Concomitant]
     Active Substance: RAMIPRIL
  3. MEPRAL [Concomitant]
     Active Substance: OMEPRAZOLE SODIUM
  4. ZYLORIC [Concomitant]
     Active Substance: ALLOPURINOL
  5. CORDARONE [Concomitant]
     Active Substance: AMIODARONE HYDROCHLORIDE
  6. ESKIM [Concomitant]
     Active Substance: OMEGA-3 FATTY ACIDS
  7. MINITRAN [Concomitant]
     Active Substance: NITROGLYCERIN
  8. LASIX [Concomitant]
     Active Substance: FUROSEMIDE
  9. DILATREND [Concomitant]
     Active Substance: CARVEDILOL
  10. ALDACTONE [Concomitant]
     Active Substance: SPIRONOLACTONE
  11. INEGY [Concomitant]
     Active Substance: EZETIMIBE\SIMVASTATIN

REACTIONS (2)
  - Drug ineffective [Unknown]
  - Cerebral ischaemia [Recovered/Resolved]

NARRATIVE: CASE EVENT DATE: 20140925
